FAERS Safety Report 25056722 (Version 1)
Quarter: 2025Q1

REPORT INFORMATION
  Report Type: Spontaneous
  Country: FR (occurrence: FR)
  Receive Date: 20250310
  Receipt Date: 20250310
  Transmission Date: 20250409
  Serious: Yes (Other)
  Sender: CHEPLAPHARM
  Company Number: None

PATIENT
  Age: 88 Year
  Sex: Male
  Weight: 62.5 kg

DRUGS (7)
  1. HYDROXYUREA [Suspect]
     Active Substance: HYDROXYUREA
     Indication: Essential thrombocythaemia
     Dosage: 1 CAPSULE PER DAY?DAILY DOSE: 500 MILLIGRAM
     Route: 048
     Dates: start: 2015, end: 20250204
  2. IRBESARTAN [Concomitant]
     Active Substance: IRBESARTAN
     Dosage: 1-0-0?DAILY DOSE: DOSAGE FORM
  3. KARDEGIC [Concomitant]
     Active Substance: ASPIRIN DL-LYSINE
     Dosage: 0-1-0?DAILY DOSE: 1 DOSAGE FORM
  4. AMITRIPTYLINE HYDROCHLORIDE [Concomitant]
     Active Substance: AMITRIPTYLINE HYDROCHLORIDE
     Dosage: 5 DROPS IN THE EVENING?DAILY DOSE: 5 DROP
  5. CHOLECALCIFEROL [Concomitant]
     Active Substance: CHOLECALCIFEROL
     Dosage: 1 AMPOULE PER MONTH
  6. MOVICOL [Concomitant]
     Active Substance: POLYETHYLENE GLYCOL 3350\POTASSIUM CHLORIDE\SODIUM BICARBONATE\SODIUM CHLORIDE
  7. ESOMEPRAZOLE [Concomitant]
     Active Substance: ESOMEPRAZOLE
     Dosage: 1-0-0?DAILY DOSE: 1 DOSAGE FORM

REACTIONS (3)
  - Anaemia macrocytic [Not Recovered/Not Resolved]
  - Dermatomyositis [Not Recovered/Not Resolved]
  - Actinic keratosis [Not Recovered/Not Resolved]

NARRATIVE: CASE EVENT DATE: 20240322
